FAERS Safety Report 8189298-4 (Version None)
Quarter: 2012Q1

REPORT INFORMATION
  Report Type: 
  Country: None (occurrence: None)
  Receive Date: 20120307
  Receipt Date: 20120229
  Transmission Date: 20120608
  Serious: Yes (Death, Hospitalization)
  Sender: FDA-Public Use
  Company Number: US-CELGENEUS-163-CCAZA-12010919

PATIENT
  Age: 74 Year
  Sex: Male
  Weight: 92 kg

DRUGS (2)
  1. MYLOTARG [Suspect]
     Dosage: 3 MILLIGRAM/SQ. METER
     Route: 041
     Dates: start: 20111122, end: 20111122
  2. AZACITIDINE [Suspect]
     Dosage: 160 MILLIGRAM
     Route: 058
     Dates: start: 20111115, end: 20111121

REACTIONS (4)
  - FEBRILE NEUTROPENIA [None]
  - SEPSIS [None]
  - ATRIAL FIBRILLATION [None]
  - MULTI-ORGAN FAILURE [None]
